FAERS Safety Report 5224295-X (Version None)
Quarter: 2007Q1

REPORT INFORMATION
  Report Type: 
  Country: None (occurrence: None)
  Receive Date: 20070130
  Receipt Date: 20070123
  Transmission Date: 20070707
  Serious: Yes (Other)
  Sender: FDA-Public Use
  Company Number: US-ELI_LILLY_AND_COMPANY-US200701004790

PATIENT
  Age: 48 Year
  Sex: Male

DRUGS (2)
  1. HUMATROPE [Suspect]
     Indication: GROWTH HORMONE DEFICIENCY
     Dosage: UNK, UNK
     Dates: start: 20060801
  2. HUMATROPE [Suspect]
     Dates: start: 20020801, end: 20031001

REACTIONS (2)
  - INJECTION SITE PAIN [None]
  - LEUKAEMIA [None]
